FAERS Safety Report 4974392-9 (Version None)
Quarter: 2006Q2

REPORT INFORMATION
  Report Type: 
  Country: None (occurrence: None)
  Receive Date: 20060417
  Receipt Date: 20060411
  Transmission Date: 20061013
  Serious: Yes (Hospitalization)
  Sender: FDA-Public Use
  Company Number: DE-BRISTOL-MYERS SQUIBB COMPANY-13344239

PATIENT
  Age: 40 Year
  Sex: Female

DRUGS (5)
  1. CYCLOPHOSPHAMIDE [Suspect]
     Indication: BREAST CANCER
  2. DOXORUBICIN HCL [Suspect]
     Indication: BREAST CANCER
  3. NEULASTA [Suspect]
     Indication: CHEMOTHERAPY
  4. DOCETAXEL [Suspect]
     Indication: BREAST CANCER
  5. CIPROFLOXACIN HCL [Suspect]
     Dates: start: 20031130

REACTIONS (2)
  - ABDOMINAL PAIN [None]
  - CROHN'S DISEASE [None]
